FAERS Safety Report 9012042 (Version 1)
Quarter: 2013Q1

REPORT INFORMATION
  Report Type: Spontaneous
  Country: US (occurrence: US)
  Receive Date: 20130114
  Receipt Date: 20130114
  Transmission Date: 20140127
  Serious: Yes (Other)
  Sender: FDA-Public Use
  Company Number: US-BAYER-2013-002312

PATIENT
  Age: 27 Year
  Sex: Female
  Weight: 112.93 kg

DRUGS (12)
  1. YAZ [Suspect]
  2. YASMIN [Suspect]
  3. OCELLA [Suspect]
  4. VITAMIN D [Concomitant]
     Dosage: QW [TIMES] 4 THEN QO WEEK; 50 MIU
  5. FLAGYL [Concomitant]
     Dosage: 500, BID
  6. TOPAMAX [Concomitant]
  7. CLINDAMYCIN [Concomitant]
     Dosage: 5 G, QD FOR 7 DAYS
     Route: 067
  8. FLULAVAL FLU SHOT [Concomitant]
     Dosage: 0.5 CC
  9. GARDASIL [Concomitant]
  10. IBUPROFEN [Concomitant]
  11. PROTONIX [Concomitant]
  12. AZITHROMYCIN [Concomitant]

REACTIONS (1)
  - Thrombosis [None]
